FAERS Safety Report 5290236-2 (Version None)
Quarter: 2007Q2

REPORT INFORMATION
  Report Type: 
  Country: None (occurrence: None)
  Receive Date: 20070402
  Receipt Date: 20070315
  Transmission Date: 20071010
  Serious: Yes (Death)
  Sender: FDA-Public Use
  Company Number: 8022660

PATIENT
  Age: 37 Year
  Sex: Male

DRUGS (4)
  1. KEPPRA [Suspect]
     Indication: CONVULSION
     Dosage: 2000 MG /D PO
     Route: 048
     Dates: start: 20041207, end: 20050113
  2. DILANTIN [Concomitant]
  3. LAMICTAL [Concomitant]
  4. CLONAZEPAM [Concomitant]

REACTIONS (9)
  - ACIDOSIS [None]
  - ANTICONVULSANT DRUG LEVEL DECREASED [None]
  - BLOOD PRESSURE INCREASED [None]
  - CONVULSION [None]
  - DYSPNOEA [None]
  - HYPERVENTILATION [None]
  - POSTICTAL STATE [None]
  - SPEECH DISORDER [None]
  - TREATMENT NONCOMPLIANCE [None]
